FAERS Safety Report 7910110-X (Version None)
Quarter: 2011Q4

REPORT INFORMATION
  Report Type: 
  Country: None (occurrence: None)
  Receive Date: 20111111
  Receipt Date: 20111107
  Transmission Date: 20120403
  Serious: Yes (Other)
  Sender: FDA-Public Use
  Company Number: CHPA2011US015621

PATIENT
  Age: 80 Year
  Sex: Female

DRUGS (4)
  1. VOLTAREN [Suspect]
     Dosage: A LITTLE BIT, AS NEEDED
     Route: 061
     Dates: start: 20111103
  2. EQUATE (ACETYLSALICYLIC ACID) [Concomitant]
     Dosage: 80 MG A DAY
  3. VOLTAREN [Suspect]
     Indication: OSTEOARTHRITIS
     Dosage: 2 TO 3 TIMES A WEEK AT NIGHT
     Route: 061
  4. COUMADIN [Concomitant]
     Dosage: 7 MG, UNK

REACTIONS (5)
  - UNDERDOSE [None]
  - HYPERSENSITIVITY [None]
  - DRUG DISPENSING ERROR [None]
  - WRONG TECHNIQUE IN DRUG USAGE PROCESS [None]
  - URTICARIA [None]
